FAERS Safety Report 25797448 (Version 1)
Quarter: 2025Q3

REPORT INFORMATION
  Report Type: Spontaneous
  Country: US (occurrence: US)
  Receive Date: 20250912
  Receipt Date: 20250912
  Transmission Date: 20251021
  Serious: No
  Sender: MAYNE
  Company Number: US-MAYNE PHARMA-2024MYN000556

PATIENT
  Sex: Female

DRUGS (1)
  1. SOLTAMOX [Suspect]
     Active Substance: TAMOXIFEN CITRATE
     Indication: Product used for unknown indication
     Route: 048

REACTIONS (2)
  - Throat irritation [Unknown]
  - Intentional product misuse [Unknown]
